FAERS Safety Report 14846198 (Version 1)
Quarter: 2018Q2

REPORT INFORMATION
  Report Type: Spontaneous
  Country: FR (occurrence: FR)
  Receive Date: 20180504
  Receipt Date: 20180504
  Transmission Date: 20180711
  Serious: Yes (Other)
  Sender: FDA-Public Use
  Company Number: FR-MERCK KGAA-2047194

PATIENT
  Age: 53 Year
  Sex: Female

DRUGS (1)
  1. NOVOTHYROX [Suspect]
     Active Substance: LEVOTHYROXINE SODIUM
     Indication: PRODUCT USED FOR UNKNOWN INDICATION

REACTIONS (29)
  - Pericarditis [None]
  - Asthenia [Recovered/Resolved]
  - Muscle contracture [Recovered/Resolved]
  - Blood albumin decreased [None]
  - Blood pressure fluctuation [Recovered/Resolved]
  - Myalgia [None]
  - Anxiety [None]
  - Social avoidant behaviour [None]
  - Arthritis [Recovered/Resolved]
  - Irritability [Recovered/Resolved]
  - Generalised oedema [None]
  - Loss of personal independence in daily activities [None]
  - Malaise [None]
  - Hypertriglyceridaemia [None]
  - Back pain [None]
  - Pericardial effusion [Recovered/Resolved]
  - Diarrhoea [Recovered/Resolved]
  - Aggression [None]
  - Eyelid oedema [Recovered/Resolved]
  - Fatigue [None]
  - Depressed mood [None]
  - Sinus node dysfunction [Recovered/Resolved]
  - Insomnia [None]
  - Impaired driving ability [None]
  - Undifferentiated connective tissue disease [None]
  - Migraine [Recovered/Resolved]
  - Dizziness [Recovered/Resolved]
  - Chest pain [None]
  - Muscle spasms [None]

NARRATIVE: CASE EVENT DATE: 20170324
